FAERS Safety Report 13915195 (Version 1)
Quarter: 2017Q3

REPORT INFORMATION
  Report Type: Report from Study
  Country: CN (occurrence: CN)
  Receive Date: 20170829
  Receipt Date: 20170829
  Transmission Date: 20171127
  Serious: Yes (Other)
  Sender: FDA-Public Use
  Company Number: CN-ROCHE-1982542

PATIENT

DRUGS (1)
  1. ALTEPLASE. [Suspect]
     Active Substance: ALTEPLASE
     Indication: BASAL GANGLIA HAEMORRHAGE
     Route: 050

REACTIONS (6)
  - Cerebral haemorrhage [Unknown]
  - Epilepsy [Unknown]
  - Renal failure [Unknown]
  - Central nervous system infection [Unknown]
  - Lung infection [Unknown]
  - Gastrointestinal haemorrhage [Unknown]
